FAERS Safety Report 6414952-1 (Version None)
Quarter: 2009Q4

REPORT INFORMATION
  Report Type: 
  Country: None (occurrence: None)
  Receive Date: 20091026
  Receipt Date: 20090311
  Transmission Date: 20100525
  Serious: No
  Sender: FDA-Public Use
  Company Number: US-ABBOTT-09P-163-0562265-00

PATIENT
  Sex: Female
  Weight: 54.48 kg

DRUGS (4)
  1. LUPRON DEPOT [Suspect]
     Indication: ENDOMETRIOSIS
     Dosage: 1 PER MONTH RECEIVED 3 SHOTS ONLY
     Route: 050
     Dates: start: 20081123, end: 20090101
  2. LUPRON DEPOT [Suspect]
     Indication: MIGRAINE
  3. LUPRON DEPOT [Suspect]
     Indication: METRORRHAGIA
  4. AMERGE [Concomitant]
     Indication: MIGRAINE

REACTIONS (1)
  - MENORRHAGIA [None]
